FAERS Safety Report 8621694-0 (Version None)
Quarter: 2012Q3

REPORT INFORMATION
  Report Type: 
  Country: None (occurrence: None)
  Receive Date: 20120821
  Receipt Date: 20120821
  Transmission Date: 20120928
  Serious: No
  Sender: FDA-Public Use
  Company Number: None

PATIENT
  Age: 49 Year
  Sex: Female
  Weight: 109.1 kg

DRUGS (1)
  1. LORAZEPAM [Suspect]
     Dosage: 1MG  PER DAY BY MOUTH
     Dates: start: 20120816

REACTIONS (4)
  - CONDITION AGGRAVATED [None]
  - PRODUCT COUNTERFEIT [None]
  - DRUG INEFFECTIVE [None]
  - ANXIETY [None]
